FAERS Safety Report 13057486 (Version 1)
Quarter: 2016Q4

REPORT INFORMATION
  Report Type: Spontaneous
  Country: US (occurrence: US)
  Receive Date: 20161223
  Receipt Date: 20161223
  Transmission Date: 20170207
  Serious: Yes (Death, Hospitalization, Other)
  Sender: FDA-Public Use
  Company Number: US-SUN PHARMACEUTICAL INDUSTRIES LTD-2016US-130081

PATIENT
  Age: 49 Year
  Sex: Male

DRUGS (4)
  1. CLARITHROMYCIN. [Interacting]
     Active Substance: CLARITHROMYCIN
     Indication: GASTRITIS BACTERIAL
  2. COLCHICINE. [Interacting]
     Active Substance: COLCHICINE
     Indication: GASTRITIS BACTERIAL
  3. CLARITHROMYCIN. [Suspect]
     Active Substance: CLARITHROMYCIN
     Indication: HELICOBACTER INFECTION
     Route: 065
  4. COLCHICINE. [Interacting]
     Active Substance: COLCHICINE
     Indication: HELICOBACTER INFECTION
     Route: 065

REACTIONS (9)
  - Multiple organ dysfunction syndrome [Fatal]
  - Shock [Unknown]
  - Toxicity to various agents [Fatal]
  - Acute kidney injury [Unknown]
  - Pancytopenia [Recovering/Resolving]
  - Gout [Unknown]
  - Mental impairment [Unknown]
  - Drug interaction [Unknown]
  - Liver function test abnormal [Unknown]
